FAERS Safety Report 9116245 (Version 1)
Quarter: 2013Q1

REPORT INFORMATION
  Report Type: Spontaneous
  Country: US (occurrence: US)
  Receive Date: 20130225
  Receipt Date: 20130225
  Transmission Date: 20140127
  Serious: No
  Sender: FDA-Public Use
  Company Number: US-009507513-1302USA010539

PATIENT
  Age: 85 Year
  Sex: Male

DRUGS (2)
  1. PROVENTIL [Suspect]
     Indication: ASTHMA
     Dosage: 2 PUFFS, TID
     Route: 055
     Dates: start: 201110
  2. QVAR [Concomitant]

REACTIONS (1)
  - Dysphonia [Not Recovered/Not Resolved]
